FAERS Safety Report 9602951 (Version 1)
Quarter: 2013Q4

REPORT INFORMATION
  Report Type: Report from Study
  Country: ES (occurrence: ES)
  Receive Date: 20131007
  Receipt Date: 20131007
  Transmission Date: 20140711
  Serious: Yes (Hospitalization)
  Sender: FDA-Public Use
  Company Number: ES-BAYER-2013-118388

PATIENT
  Age: 69 Year
  Sex: 0

DRUGS (1)
  1. ACTIRA 400 MG COMPRIMIDOS RECUBIERTOS CON PELICULA, 5 COMPRIMIDOS [Suspect]
     Indication: NASOPHARYNGITIS
     Dosage: 400 MG, UNK
     Route: 048
     Dates: start: 20130905, end: 20130905

REACTIONS (6)
  - Hypersensitivity [Recovered/Resolved]
  - Respiratory failure [Recovered/Resolved]
  - Rash pruritic [Recovered/Resolved]
  - Bronchospasm [Recovered/Resolved]
  - Nausea [Recovered/Resolved]
  - Abdominal pain upper [Recovered/Resolved]
